FAERS Safety Report 18103246 (Version 1)
Quarter: 2020Q3

REPORT INFORMATION
  Report Type: Spontaneous
  Country: US (occurrence: US)
  Receive Date: 20200731
  Receipt Date: 20200731
  Transmission Date: 20201103
  Serious: Yes (Death)
  Sender: FDA-Public Use
  Company Number: None

PATIENT
  Age: 59 Year
  Sex: Male
  Weight: 56.2 kg

DRUGS (16)
  1. CAPECITABINE. [Suspect]
     Active Substance: CAPECITABINE
     Indication: OESOPHAGEAL CARCINOMA
     Route: 048
     Dates: start: 20200513, end: 20200731
  2. ACETAMINOPHEN. [Concomitant]
     Active Substance: ACETAMINOPHEN
  3. LOSARTAN. [Concomitant]
     Active Substance: LOSARTAN
  4. MELATONIN [Concomitant]
     Active Substance: MELATONIN
  5. MAGNESIUM OXIDE. [Concomitant]
     Active Substance: MAGNESIUM OXIDE
  6. CAPECITABINE. [Suspect]
     Active Substance: CAPECITABINE
     Indication: OESOPHAGEAL CARCINOMA
     Route: 048
     Dates: start: 20200513, end: 20200731
  7. METOPROLOL. [Concomitant]
     Active Substance: METOPROLOL
  8. PHENOL. [Concomitant]
     Active Substance: PHENOL
  9. ASPIRIN. [Concomitant]
     Active Substance: ASPIRIN
  10. GUAIFENESIN. [Concomitant]
     Active Substance: GUAIFENESIN
  11. QUESTRAN [Concomitant]
     Active Substance: CHOLESTYRAMINE
  12. FERROUS SULFATE. [Concomitant]
     Active Substance: FERROUS SULFATE
  13. VANCOMYCIN [Concomitant]
     Active Substance: VANCOMYCIN
  14. ALBUTEROL. [Concomitant]
     Active Substance: ALBUTEROL
  15. PANTOPRAZOLE [Concomitant]
     Active Substance: PANTOPRAZOLE
  16. VITAMIN B12 [Concomitant]
     Active Substance: CYANOCOBALAMIN

REACTIONS (1)
  - Death [None]

NARRATIVE: CASE EVENT DATE: 20200731
